FAERS Safety Report 5558675-X (Version None)
Quarter: 2007Q4

REPORT INFORMATION
  Report Type: 
  Country: None (occurrence: None)
  Receive Date: 20071214
  Receipt Date: 20071204
  Transmission Date: 20080405
  Serious: Yes (Hospitalization, Other)
  Sender: FDA-Public Use
  Company Number: FR-PFIZER INC-2007102828

PATIENT
  Sex: Male

DRUGS (2)
  1. LYRICA [Suspect]
     Indication: NEURALGIA
     Route: 048
     Dates: start: 20070829, end: 20071003
  2. LYRICA [Suspect]
     Dosage: TEXT:300 MG QID EVERY DAY TDD:1200 MG
     Route: 048
     Dates: start: 20071004, end: 20071012

REACTIONS (3)
  - ATAXIA [None]
  - DYSARTHRIA [None]
  - INTENTIONAL DRUG MISUSE [None]
